FAERS Safety Report 5293331-7 (Version None)
Quarter: 2007Q1

REPORT INFORMATION
  Report Type: 
  Country: None (occurrence: None)
  Receive Date: 20070116
  Receipt Date: 20060321
  Transmission Date: 20070707
  Serious: Yes (Other)
  Sender: FDA-Public Use
  Company Number: HQWYE830504AUG04

PATIENT
  Age: 59 Year
  Sex: Female
  Weight: 57.66 kg

DRUGS (1)
  1. PREMPRO [Suspect]
     Indication: HORMONE REPLACEMENT THERAPY
     Dosage: 0.625MG/2.5MG; ORAL
     Route: 048
     Dates: start: 19960101, end: 20020101

REACTIONS (1)
  - BREAST CANCER [None]
